FAERS Safety Report 13676909 (Version 2)
Quarter: 2018Q2

REPORT INFORMATION
  Report Type: Report from Study
  Country: DE (occurrence: DE)
  Receive Date: 20170622
  Receipt Date: 20180608
  Transmission Date: 20180711
  Serious: Yes (Hospitalization, Other)
  Sender: FDA-Public Use
  Company Number: DE-AMGEN-DEUNI2017094291

PATIENT
  Age: 82 Year
  Sex: Female

DRUGS (17)
  1. DABIGATRAN [Concomitant]
     Active Substance: DABIGATRAN
  2. ENALAPRIL [Concomitant]
     Active Substance: ENALAPRIL
  3. ZOPICLON [Concomitant]
     Active Substance: ZOPICLONE
  4. METOPROLOL SUCCINATE. [Concomitant]
     Active Substance: METOPROLOL SUCCINATE
  5. ALLOPURINOL. [Concomitant]
     Active Substance: ALLOPURINOL
  6. LANTAREL [Suspect]
     Active Substance: METHOTREXATE SODIUM
     Indication: PRODUCT USED FOR UNKNOWN INDICATION
     Dosage: 10 MG, WEEKLY
     Route: 065
  7. PREDNISOLONE. [Concomitant]
     Active Substance: PREDNISOLONE
  8. PANTOPRAZOL [Concomitant]
     Active Substance: PANTOPRAZOLE SODIUM
  9. MAGNESIUM CITRATE. [Concomitant]
     Active Substance: MAGNESIUM CITRATE
  10. ETANERCEPT [Suspect]
     Active Substance: ETANERCEPT
     Indication: PRODUCT USED FOR UNKNOWN INDICATION
     Dosage: 50 MG, QWK
     Route: 065
  11. ORENCIA [Suspect]
     Active Substance: ABATACEPT
     Indication: PRODUCT USED FOR UNKNOWN INDICATION
     Dosage: 125 MG, WEEKLY
     Route: 058
     Dates: start: 20161010
  12. SPIRONOLACTON [Concomitant]
     Active Substance: SPIRONOLACTONE
  13. TILIDIN [Concomitant]
     Active Substance: NALOXONE HYDROCHLORIDE\TILIDINE HYDROCHLORIDE
  14. METHOTREXATE. [Concomitant]
     Active Substance: METHOTREXATE
     Dosage: 10 MG, WEEKLY
  15. NALOXON [Concomitant]
     Active Substance: NALOXONE HYDROCHLORIDE
  16. L-THYROXIN [Concomitant]
     Active Substance: LEVOTHYROXINE SODIUM
  17. FOLSAEURE [Concomitant]
     Active Substance: FOLIC ACID

REACTIONS (1)
  - Diabetes mellitus inadequate control [Recovered/Resolved]

NARRATIVE: CASE EVENT DATE: 20161019
